FAERS Safety Report 7884304-6 (Version None)
Quarter: 2011Q4

REPORT INFORMATION
  Report Type: 
  Country: None (occurrence: None)
  Receive Date: 20111102
  Receipt Date: 20111021
  Transmission Date: 20120403
  Serious: Yes (Hospitalization)
  Sender: FDA-Public Use
  Company Number: DE-ROCHE-1006867

PATIENT
  Sex: Female

DRUGS (4)
  1. OXALIPLATIN [Concomitant]
     Indication: COLON CANCER
     Route: 065
     Dates: start: 20110110, end: 20110321
  2. PANTOPRAZOLE SODIUM [Concomitant]
     Indication: COLON CANCER
     Route: 048
     Dates: start: 20111019
  3. AVASTIN [Suspect]
     Indication: COLON CANCER
     Route: 065
     Dates: start: 20110110, end: 20110321
  4. FLUOROURACIL [Concomitant]
     Indication: COLON CANCER
     Route: 065
     Dates: start: 20110110, end: 20110321

REACTIONS (4)
  - DEHYDRATION [None]
  - NEOPLASM MALIGNANT [None]
  - THERAPEUTIC RESPONSE DECREASED [None]
  - DIARRHOEA [None]
